FAERS Safety Report 6427971-6 (Version None)
Quarter: 2009Q4

REPORT INFORMATION
  Report Type: 
  Country: None (occurrence: None)
  Receive Date: 20091105
  Receipt Date: 20091028
  Transmission Date: 20100525
  Serious: Yes (Other)
  Sender: FDA-Public Use
  Company Number: CH-ASTRAZENECA-2009SE23825

PATIENT
  Age: 23 Year
  Sex: Female

DRUGS (4)
  1. SEROQUEL [Suspect]
     Indication: DEPRESSION
     Route: 048
     Dates: start: 20080421, end: 20080421
  2. RITALIN [Suspect]
     Indication: DISTURBANCE IN ATTENTION
     Dates: start: 20080101, end: 20080420
  3. TRAZODONE HCL [Suspect]
     Indication: DEPRESSION
     Dates: end: 20080420
  4. VENTOLIN [Concomitant]
     Indication: ASTHMA

REACTIONS (1)
  - DRUG EXPOSURE DURING PREGNANCY [None]
